FAERS Safety Report 10757309 (Version 1)
Quarter: 2015Q1

REPORT INFORMATION
  Report Type: Spontaneous
  Country: US (occurrence: None)
  Receive Date: 20150130
  Receipt Date: 20150130
  Transmission Date: 20150721
  Serious: Yes (Life-Threatening)
  Sender: FDA-Public Use
  Company Number: 2729193

PATIENT
  Age: 15 Year
  Sex: Male
  Weight: 76 kg

DRUGS (4)
  1. EPINEPHRINE. [Suspect]
     Active Substance: EPINEPHRINE
     Indication: HAEMODYNAMIC INSTABILITY
     Route: 041
  2. VASOPRESSION [Concomitant]
  3. BICARBONATE [Concomitant]
     Active Substance: BICARBONATE ION
  4. CALCIUM [Concomitant]
     Active Substance: CALCIUM

REACTIONS (2)
  - Ventricular tachycardia [None]
  - Ventricular dysfunction [None]
